FAERS Safety Report 7836380-4 (Version None)
Quarter: 2011Q4

REPORT INFORMATION
  Report Type: 
  Country: None (occurrence: None)
  Receive Date: 20111024
  Receipt Date: 20110626
  Transmission Date: 20120403
  Serious: No
  Sender: FDA-Public Use
  Company Number: US-BAYER-2011-097960

PATIENT
  Age: 53 Year
  Sex: Male
  Weight: 104 kg

DRUGS (2)
  1. ALEVE (CAPLET) [Suspect]
     Dosage: UNK
     Route: 048
     Dates: start: 20110901
  2. ALEVE (CAPLET) [Suspect]
     Dosage: UNK
     Route: 048
     Dates: start: 20080101, end: 20110901

REACTIONS (1)
  - NO ADVERSE EVENT [None]
